FAERS Safety Report 7037286-3 (Version None)
Quarter: 2010Q4

REPORT INFORMATION
  Report Type: 
  Country: None (occurrence: None)
  Receive Date: 20101011
  Receipt Date: 20100929
  Transmission Date: 20110411
  Serious: Yes (Other)
  Sender: FDA-Public Use
  Company Number: US-ELI_LILLY_AND_COMPANY-US201008005418

PATIENT
  Sex: Female

DRUGS (10)
  1. FORTEO [Suspect]
     Indication: OSTEOPOROSIS
     Dosage: 20 UG, DAILY (1/D)
     Route: 065
     Dates: start: 20100614
  2. LO-TROL [Concomitant]
  3. ZOLOFT [Concomitant]
  4. VITAMINS [Concomitant]
  5. FISH OIL [Concomitant]
  6. CALCIUM [Concomitant]
  7. VITAMIN D [Concomitant]
  8. CHOLESTEROL [Concomitant]
  9. AMBIEN [Concomitant]
  10. ASPIRIN [Concomitant]

REACTIONS (10)
  - BACK PAIN [None]
  - FALL [None]
  - MALAISE [None]
  - NAUSEA [None]
  - RASH [None]
  - RETCHING [None]
  - SPINAL FRACTURE [None]
  - UPPER LIMB FRACTURE [None]
  - URTICARIA [None]
  - VOMITING [None]
